FAERS Safety Report 11976212 (Version 1)
Quarter: 2016Q1

REPORT INFORMATION
  Report Type: Spontaneous
  Country: US (occurrence: None)
  Receive Date: 20160128
  Receipt Date: 20160128
  Transmission Date: 20160526
  Serious: No
  Sender: FDA-Public Use
  Company Number: None

PATIENT
  Age: 16 Year
  Sex: Male
  Weight: 62.6 kg

DRUGS (6)
  1. KEPPRA [Concomitant]
     Active Substance: LEVETIRACETAM
  2. LAMOTRIGINE. [Concomitant]
     Active Substance: LAMOTRIGINE
  3. VIMPAT [Concomitant]
     Active Substance: LACOSAMIDE
  4. DEPAKOTE SPRINKLES [Suspect]
     Active Substance: DIVALPROEX SODIUM
     Indication: COMPLEX PARTIAL SEIZURES
     Route: 048
     Dates: start: 2008
  5. DIVALPROEX [Suspect]
     Active Substance: DIVALPROEX SODIUM
  6. FYCOMPA [Concomitant]
     Active Substance: PERAMPANEL

REACTIONS (3)
  - Seizure [None]
  - Condition aggravated [None]
  - Gastrooesophageal reflux disease [None]
